FAERS Safety Report 20952442 (Version 1)
Quarter: 2022Q2

REPORT INFORMATION
  Report Type: Spontaneous
  Country: US (occurrence: None)
  Receive Date: 20220612
  Receipt Date: 20220612
  Transmission Date: 20220721
  Serious: Yes (Disabling)
  Sender: FDA-Public Use
  Company Number: None

PATIENT
  Age: 49 Year
  Sex: Female

DRUGS (2)
  1. GABAPENTIN [Suspect]
     Active Substance: GABAPENTIN
     Indication: Sleep disorder
     Dosage: OTHER QUANTITY : 1 CAPSULE(S);?FREQUENCY : 3 TIMES A DAY;?
     Route: 048
     Dates: start: 20210901, end: 20210912
  2. GABAPENTIN [Suspect]
     Active Substance: GABAPENTIN
     Indication: Depression

REACTIONS (1)
  - Somnambulism [None]

NARRATIVE: CASE EVENT DATE: 20210901
